FAERS Safety Report 9726148 (Version 1)
Quarter: 2013Q4

REPORT INFORMATION
  Report Type: Spontaneous
  Country: US (occurrence: US)
  Receive Date: 20131203
  Receipt Date: 20131203
  Transmission Date: 20140711
  Serious: Yes (Other)
  Sender: FDA-Public Use
  Company Number: US-JNJFOC-20131116829

PATIENT
  Sex: Female

DRUGS (5)
  1. INVOKANA [Suspect]
     Indication: DIABETES MELLITUS
     Route: 048
     Dates: start: 20131009, end: 20131030
  2. LETROZOLE [Concomitant]
  3. METFORMIN [Concomitant]
     Indication: DIABETES MELLITUS
  4. RAMIPRIL [Concomitant]
  5. ATORVASTATIN [Concomitant]

REACTIONS (4)
  - Palpitations [Unknown]
  - Chest pain [Recovered/Resolved]
  - Headache [Unknown]
  - Hyperkalaemia [Unknown]
